FAERS Safety Report 8184111-3 (Version None)
Quarter: 2012Q1

REPORT INFORMATION
  Report Type: 
  Country: None (occurrence: None)
  Receive Date: 20120305
  Receipt Date: 20120222
  Transmission Date: 20120608
  Serious: Yes (Hospitalization)
  Sender: FDA-Public Use
  Company Number: JP-ROCHE-1043743

PATIENT
  Age: 50 Year
  Sex: Male

DRUGS (6)
  1. PREDNISOLONE [Suspect]
     Indication: COLITIS ULCERATIVE
  2. CYCLOSPORINE [Suspect]
     Indication: COLITIS ULCERATIVE
  3. BETAMETHASONE [Suspect]
     Indication: COLITIS ULCERATIVE
  4. MESALAMINE [Suspect]
     Indication: COLITIS ULCERATIVE
  5. AZATHIOPRINE [Suspect]
     Indication: COLITIS ULCERATIVE
  6. GANCICLOVIR [Suspect]
     Indication: CYTOMEGALOVIRUS INFECTION
     Route: 042
     Dates: start: 20110101

REACTIONS (1)
  - APLASIA PURE RED CELL [None]
